FAERS Safety Report 16672546 (Version 1)
Quarter: 2019Q3

REPORT INFORMATION
  Report Type: Spontaneous
  Country: US (occurrence: US)
  Receive Date: 20190620
  Receipt Date: 20190620
  Transmission Date: 20191004
  Serious: Yes (Death)
  Sender: FDA-Public Use
  Company Number: None

PATIENT
  Age: 76 Year
  Sex: Male

DRUGS (1)
  1. ENOXAPARIN INJ 120MG/0.8ML [Suspect]
     Active Substance: ENOXAPARIN
     Route: 058
     Dates: start: 201802

REACTIONS (1)
  - Pancreatic carcinoma [None]
